FAERS Safety Report 9259477 (Version 1)
Quarter: 2013Q2

REPORT INFORMATION
  Report Type: Report from Study
  Country: TW (occurrence: TW)
  Receive Date: 20130428
  Receipt Date: 20130428
  Transmission Date: 20140414
  Serious: No
  Sender: FDA-Public Use
  Company Number: PHHY2013TW041340

PATIENT
  Age: 35 Year
  Sex: Male

DRUGS (3)
  1. AMN107 [Suspect]
     Dosage: 600 MG, UNK
     Dates: start: 20091126
  2. GLIMEPIRIDE [Concomitant]
     Indication: DIABETES MELLITUS
  3. KOSONIN [Concomitant]
     Indication: COUGH
     Dosage: UNK UKN, UNK
     Dates: start: 20111014, end: 20111111

REACTIONS (3)
  - Oropharyngeal pain [Unknown]
  - Bone pain [Unknown]
  - Diarrhoea [Unknown]
